FAERS Safety Report 10398787 (Version 1)
Quarter: 2014Q3

REPORT INFORMATION
  Report Type: Spontaneous
  Country: US (occurrence: None)
  Receive Date: 20140818
  Receipt Date: 20140818
  Transmission Date: 20150326
  Serious: Yes (Hospitalization)
  Sender: FDA-Public Use
  Company Number: None

PATIENT

DRUGS (9)
  1. ANTIPYRINE BENZOCAINE EAR DROP PRODUCT OF CANADA [Suspect]
     Active Substance: ANTIPYRINE\BENZOCAINE
     Dosage: 10MG?2-DROPS EVERY 3 HOURS?EVERY 3-HOURS 1:30PM TIL 7:30PM DG?USES EAR DROPPER LEFT EAR
     Dates: start: 20140624, end: 20140624
  2. PROLENSA [Concomitant]
     Active Substance: BROMFENAC SODIUM
  3. POTASSIUM GLUCONATE [Concomitant]
     Active Substance: POTASSIUM GLUCONATE
  4. VITAMIN D [Concomitant]
     Active Substance: CHOLECALCIFEROL
  5. COMPLETE MULTIVITAMIN FOR MEN [Concomitant]
  6. COD LIVER OIL [Concomitant]
     Active Substance: COD LIVER OIL
  7. GARLIC. [Concomitant]
     Active Substance: GARLIC
  8. COMBIGAN [Concomitant]
     Active Substance: BRIMONIDINE TARTRATE\TIMOLOL MALEATE
  9. MAGNESIUM-CALCIUM [Concomitant]

REACTIONS (1)
  - Dizziness [None]

NARRATIVE: CASE EVENT DATE: 20140624
